FAERS Safety Report 16524269 (Version 1)
Quarter: 2019Q3

REPORT INFORMATION
  Report Type: Spontaneous
  Country: SE (occurrence: SE)
  Receive Date: 20190703
  Receipt Date: 20190703
  Transmission Date: 20191004
  Serious: Yes (Life-Threatening, Hospitalization, Other)
  Sender: FDA-Public Use
  Company Number: SE-MACLEODS PHARMACEUTICALS US LTD-MAC2019021914

PATIENT

DRUGS (1)
  1. QUETIAPINE 400MG TABLET [Suspect]
     Active Substance: QUETIAPINE
     Indication: PRODUCT USED FOR UNKNOWN INDICATION
     Dosage: 200 DOSAGE FORM, SLOW RELEASE TABLET, 80 G (200 TABLETS X 400 MG)
     Route: 048

REACTIONS (2)
  - Bezoar [Recovered/Resolved]
  - Overdose [Recovered/Resolved]
